FAERS Safety Report 5493010-7 (Version None)
Quarter: 2007Q4

REPORT INFORMATION
  Report Type: 
  Country: None (occurrence: None)
  Receive Date: 20071018
  Receipt Date: 20071004
  Transmission Date: 20080405
  Serious: Yes (Other)
  Sender: FDA-Public Use
  Company Number: 2007S1009839

PATIENT
  Age: 73 Year
  Sex: Male

DRUGS (5)
  1. METFORMIN HCL [Suspect]
     Indication: DIABETES MELLITUS
     Dosage: 1000 MG; TWICE A DAY
     Dates: start: 20070824, end: 20070831
  2. ASPIRIN [Concomitant]
  3. DILTIAZEM [Concomitant]
  4. GLICLAZIDE (GLICLAZIDE) [Concomitant]
  5. GTN (GLYCERYL TRINITRATE) [Concomitant]

REACTIONS (4)
  - PROTEIN URINE PRESENT [None]
  - RASH [None]
  - URINE ALBUMIN/CREATININE RATIO INCREASED [None]
  - VASCULITIC RASH [None]
